FAERS Safety Report 4654037-8 (Version None)
Quarter: 2005Q2

REPORT INFORMATION
  Report Type: 
  Country: None (occurrence: None)
  Receive Date: 20050504
  Receipt Date: 20050421
  Transmission Date: 20051028
  Serious: Yes (Hospitalization)
  Sender: FDA-Public Use
  Company Number: CA-2004-029062

PATIENT
  Age: 42 Year
  Sex: Male

DRUGS (1)
  1. BETASERON [Suspect]
     Indication: RELAPSING-REMITTING MULTIPLE SCLEROSIS
     Dosage: 8 MIU, EVERY 2D NEW AUTOINJECTOR, SUBCUTANEOUS
     Route: 058
     Dates: start: 20031015

REACTIONS (7)
  - HYPOAESTHESIA [None]
  - MULTIPLE SCLEROSIS RELAPSE [None]
  - NAUSEA [None]
  - ROAD TRAFFIC ACCIDENT [None]
  - SKIN BURNING SENSATION [None]
  - VERTIGO [None]
  - VOMITING [None]
